FAERS Safety Report 6659723-6 (Version None)
Quarter: 2010Q1

REPORT INFORMATION
  Report Type: 
  Country: None (occurrence: None)
  Receive Date: 20100326
  Receipt Date: 20100319
  Transmission Date: 20100710
  Serious: Yes (Hospitalization)
  Sender: FDA-Public Use
  Company Number: OMPQ-NO-1003S-0190

PATIENT
  Age: 63 Year
  Sex: Male

DRUGS (6)
  1. OMNIPAQUE 350 [Suspect]
     Indication: ENDOCARDITIS
     Dosage: NR, SINGLE DOSE, INTRAVASCULAR
     Dates: start: 20090430, end: 20090430
  2. OMNIPAQUE 350 [Suspect]
     Indication: PLEURAL EFFUSION
     Dosage: NR, SINGLE DOSE, INTRAVASCULAR
     Dates: start: 20090430, end: 20090430
  3. OMNIPAQUE 350 [Suspect]
     Indication: PNEUMONIA
     Dosage: NR, SINGLE DOSE, INTRAVASCULAR
     Dates: start: 20090430, end: 20090430
  4. GENTAMICIN [Suspect]
  5. VANCOMYCIN [Suspect]
  6. IOMERON-150 [Suspect]

REACTIONS (6)
  - DERMATITIS BULLOUS [None]
  - DIALYSIS [None]
  - DYSPNOEA [None]
  - HAEMODIALYSIS [None]
  - RENAL FAILURE [None]
  - SEPSIS [None]
